FAERS Safety Report 7944497-9 (Version None)
Quarter: 2011Q4

REPORT INFORMATION
  Report Type: 
  Country: None (occurrence: None)
  Receive Date: 20111114
  Receipt Date: 20110815
  Transmission Date: 20120403
  Serious: No
  Sender: FDA-Public Use
  Company Number: 1000022878

PATIENT
  Age: 55 Year
  Sex: Female

DRUGS (10)
  1. MOBIC [Concomitant]
  2. WATER PILL (NOS) [Concomitant]
  3. K-LOR (POTASSIUM CHLORIDE) (POTASSIUM CHLORIDE) [Concomitant]
  4. SAVELLA [Suspect]
     Indication: FIBROMYALGIA
     Dosage: 12.5 MG (12.5 MG, 1 IN 1 D), ORAL ; 25 MG (12.5 MG, 2 IN 1 D), ORAL; 50 MG (25 MG, 2 IN 1 D), ORAL
     Dates: start: 20110729, end: 20110730
  5. SAVELLA [Suspect]
     Indication: FIBROMYALGIA
     Dosage: 12.5 MG (12.5 MG, 1 IN 1 D), ORAL ; 25 MG (12.5 MG, 2 IN 1 D), ORAL; 50 MG (25 MG, 2 IN 1 D), ORAL
     Dates: start: 20110728, end: 20110728
  6. SAVELLA [Suspect]
     Indication: FIBROMYALGIA
     Dosage: 12.5 MG (12.5 MG, 1 IN 1 D), ORAL ; 25 MG (12.5 MG, 2 IN 1 D), ORAL; 50 MG (25 MG, 2 IN 1 D), ORAL
     Dates: start: 20110731, end: 20110803
  7. SAVELLA [Suspect]
     Indication: FIBROMYALGIA
     Dosage: 100 MG (50 MG, 2 IN 1 D), ORAL
     Route: 048
     Dates: start: 20110804, end: 20110813
  8. LISINOPRIL [Concomitant]
  9. ATENOLOL [Concomitant]
  10. METFORMIN HCL [Concomitant]

REACTIONS (10)
  - FLUSHING [None]
  - URINE OUTPUT INCREASED [None]
  - NIGHT SWEATS [None]
  - INSOMNIA [None]
  - DYSURIA [None]
  - CONSTIPATION [None]
  - CHILLS [None]
  - HEADACHE [None]
  - NAUSEA [None]
  - BACK PAIN [None]
